FAERS Safety Report 25331382 (Version 1)
Quarter: 2025Q2

REPORT INFORMATION
  Report Type: Report from Study
  Country: US (occurrence: US)
  Receive Date: 20250519
  Receipt Date: 20250519
  Transmission Date: 20250716
  Serious: Yes (Hospitalization, Other)
  Sender: TAKEDA
  Company Number: US-TAKEDA-2025TUS046200

PATIENT
  Age: 52 Year
  Sex: Female

DRUGS (21)
  1. TEDUGLUTIDE [Suspect]
     Active Substance: TEDUGLUTIDE
     Indication: Short-bowel syndrome
     Dosage: 5 MILLIGRAM, 5/WEEK
     Dates: start: 20220423
  2. TEDUGLUTIDE [Suspect]
     Active Substance: TEDUGLUTIDE
  3. TEDUGLUTIDE [Suspect]
     Active Substance: TEDUGLUTIDE
  4. TEDUGLUTIDE [Suspect]
     Active Substance: TEDUGLUTIDE
  5. LEFLUNOMIDE [Concomitant]
     Active Substance: LEFLUNOMIDE
     Indication: Crohn^s disease
     Dosage: 20 MILLIGRAM, QD
     Dates: start: 20180125
  6. CALCIUM CARBONATE [Concomitant]
     Active Substance: CALCIUM CARBONATE
     Indication: Vitamin D deficiency
     Dosage: UNK UNK, QD
  7. CHOLECALCIFEROL [Concomitant]
     Active Substance: CHOLECALCIFEROL
     Indication: Vitamin D deficiency
     Dosage: UNK UNK, QD
  8. CYANOCOBALAMIN [Concomitant]
     Active Substance: CYANOCOBALAMIN
     Indication: Gastrooesophageal reflux disease
  9. FAMOTIDINE [Concomitant]
     Active Substance: FAMOTIDINE
     Indication: Gastrooesophageal reflux disease
  10. LEFLUNOMIDE [Concomitant]
     Active Substance: LEFLUNOMIDE
     Indication: Crohn^s disease
  11. PANCRELIPASE [Concomitant]
     Active Substance: PANCRELIPASE
     Indication: Crohn^s disease
  12. MONTELUKAST [Concomitant]
     Active Substance: MONTELUKAST
     Indication: Multiple allergies
     Dosage: 10 MILLIGRAM, QD
  13. PYRIDOXINE [Concomitant]
     Active Substance: PYRIDOXINE
     Indication: Vitamin B complex deficiency
     Dosage: 50 MILLIGRAM, BID
  14. ALBUTEROL [Concomitant]
     Active Substance: ALBUTEROL
     Indication: Multiple allergies
  15. LOTEPREDNOL [Concomitant]
     Active Substance: LOTEPREDNOL
     Indication: Conjunctivitis allergic
  16. ERGOCALCIFEROL [Concomitant]
     Active Substance: ERGOCALCIFEROL
     Indication: Vitamin D deficiency
     Dosage: 50000 INTERNATIONAL UNIT, 1/WEEK
     Dates: start: 20190128
  17. LEXAPRO [Concomitant]
     Active Substance: ESCITALOPRAM OXALATE
     Indication: Anxiety
  18. XANAX [Concomitant]
     Active Substance: ALPRAZOLAM
     Indication: Anxiety
     Dosage: 0.25 MILLIGRAM, QD
  19. PHOSPHORIC ACID\SODIUM PHOSPHATE, DIBASIC [Concomitant]
     Active Substance: PHOSPHORIC ACID\SODIUM PHOSPHATE, DIBASIC
     Indication: Proctitis
     Dosage: UNK UNK, BID
  20. SPIRONOLACTONE [Concomitant]
     Active Substance: SPIRONOLACTONE
     Indication: Acne
     Dosage: 25 MILLIGRAM, QD
  21. SKYRIZI [Concomitant]
     Active Substance: RISANKIZUMAB-RZAA
     Indication: Crohn^s disease

REACTIONS (1)
  - Sepsis [Recovered/Resolved]

NARRATIVE: CASE EVENT DATE: 20250310
